APPROVED DRUG PRODUCT: BUPROPION HYDROCHLORIDE
Active Ingredient: BUPROPION HYDROCHLORIDE
Strength: 150MG
Dosage Form/Route: TABLET, EXTENDED RELEASE;ORAL
Application: A207224 | Product #001 | TE Code: AB3
Applicant: ANBISON LABORATORY CO LTD
Approved: Jun 30, 2017 | RLD: No | RS: No | Type: RX